APPROVED DRUG PRODUCT: BUSPIRONE HYDROCHLORIDE
Active Ingredient: BUSPIRONE HYDROCHLORIDE
Strength: 10MG
Dosage Form/Route: TABLET;ORAL
Application: A208829 | Product #003
Applicant: AMNEAL PHARMACEUTICALS CO GMBH
Approved: May 24, 2017 | RLD: No | RS: No | Type: DISCN